FAERS Safety Report 5922226-8 (Version None)
Quarter: 2008Q4

REPORT INFORMATION
  Report Type: 
  Country: None (occurrence: None)
  Receive Date: 20081015
  Receipt Date: 20081010
  Transmission Date: 20090506
  Serious: Yes (Hospitalization)
  Sender: FDA-Public Use
  Company Number: RFHE762002SAE02

PATIENT
  Age: 53 Year
  Sex: Male
  Weight: 94.6657 kg

DRUGS (30)
  1. RIFAXIMIN (RIFAXIMIN) [Suspect]
     Indication: HEPATIC ENCEPHALOPATHY
     Dosage: 1100 MG (550 MG, 2 IN 1 D),ORAL; 1100 MG(550 MG, 2 IN 1 D), ORAL
     Route: 048
     Dates: start: 20060814, end: 20060801
  2. RIFAXIMIN (RIFAXIMIN) [Suspect]
     Indication: HEPATIC ENCEPHALOPATHY
     Dosage: 1100 MG (550 MG, 2 IN 1 D),ORAL; 1100 MG(550 MG, 2 IN 1 D), ORAL
     Route: 048
     Dates: start: 20060825, end: 20060828
  3. LACTULOSE [Concomitant]
  4. AMIODARONE HCL [Concomitant]
  5. CYMBALTA [Concomitant]
  6. PROPRANOLOL [Concomitant]
  7. PROTONIX (PANTROPRAZOLE) [Concomitant]
  8. NEXIUM [Concomitant]
  9. LASIX [Concomitant]
  10. ALDACTONE [Concomitant]
  11. ACETAMINOPHEN [Concomitant]
  12. UNASYN [Concomitant]
  13. DILAUDID [Concomitant]
  14. ARTIFICIAL TEAR DROPS (HYPROMELLOSE) [Concomitant]
  15. VANCOMYCIN [Concomitant]
  16. PLASMA PROTEIN FRACTION (HUMAN) [Concomitant]
  17. MAGNESIUM SULFATE [Concomitant]
  18. PENICILLIN [Concomitant]
  19. ALBUMIN (HUMAN) [Concomitant]
  20. TRAZODONE HCL [Concomitant]
  21. SEROQUEL [Concomitant]
  22. HALDOL SOLUTAB [Concomitant]
  23. PRBC (BLOOD CELLS, PACKED HUMAN) [Concomitant]
  24. THIAMIN CHLORIDE TAB [Concomitant]
  25. ROCEPHIN [Concomitant]
  26. NYSTATIN [Concomitant]
  27. ATIVAN [Concomitant]
  28. CEFTRIAXONE [Concomitant]
  29. METHIMAZOLE [Concomitant]
  30. XIFAXAN (RIFAXIMIN) [Concomitant]

REACTIONS (17)
  - ABNORMAL BEHAVIOUR [None]
  - ANAEMIA [None]
  - ANGER [None]
  - ASCITES [None]
  - BLOOD CREATININE INCREASED [None]
  - BLOOD CULTURE POSITIVE [None]
  - CONDITION AGGRAVATED [None]
  - CULTURE URINE POSITIVE [None]
  - DISORIENTATION [None]
  - HALLUCINATION [None]
  - HEADACHE [None]
  - HEPATIC ENCEPHALOPATHY [None]
  - HYPONATRAEMIA [None]
  - INSOMNIA [None]
  - LETHARGY [None]
  - TREMOR [None]
  - URINE OUTPUT DECREASED [None]
